FAERS Safety Report 6019878-3 (Version None)
Quarter: 2008Q4

REPORT INFORMATION
  Report Type: 
  Country: None (occurrence: None)
  Receive Date: 20081222
  Receipt Date: 20081204
  Transmission Date: 20090506
  Serious: No
  Sender: FDA-Public Use
  Company Number: M-08-1261

PATIENT
  Age: 66 Year
  Sex: Male

DRUGS (4)
  1. KLOR-CON [Suspect]
     Indication: MINERAL SUPPLEMENTATION
     Dosage: 10 MEQ, BID; PO
     Route: 048
  2. LASIX [Concomitant]
  3. CYMBALTA [Concomitant]
  4. VITAMINS [Concomitant]

REACTIONS (4)
  - ASTHENIA [None]
  - BLOOD POTASSIUM DECREASED [None]
  - FALL [None]
  - MEDICATION RESIDUE [None]
